FAERS Safety Report 13993036 (Version 14)
Quarter: 2024Q1

REPORT INFORMATION
  Report Type: Spontaneous
  Country: US (occurrence: US)
  Receive Date: 20170920
  Receipt Date: 20240111
  Transmission Date: 20240410
  Serious: Yes (Other)
  Sender: FDA-Public Use
  Company Number: US-PFIZER INC-2017407588

PATIENT
  Age: 69 Year
  Sex: Female
  Weight: 85 kg

DRUGS (11)
  1. XELJANZ [Suspect]
     Active Substance: TOFACITINIB CITRATE
     Indication: Rheumatoid arthritis
     Dosage: 5 MG, 2X/DAY
     Route: 048
     Dates: start: 2016
  2. XELJANZ [Suspect]
     Active Substance: TOFACITINIB CITRATE
     Dosage: UNK
  3. XELJANZ [Suspect]
     Active Substance: TOFACITINIB CITRATE
     Dosage: 5 MG, 2X/DAY
     Route: 048
     Dates: start: 201707
  4. XELJANZ [Suspect]
     Active Substance: TOFACITINIB CITRATE
     Dosage: 5 MG
  5. XELJANZ [Suspect]
     Active Substance: TOFACITINIB CITRATE
     Dosage: TWICE
     Dates: start: 2000
  6. XELJANZ [Suspect]
     Active Substance: TOFACITINIB CITRATE
     Dosage: 10 MG, 2X/DAY
  7. GABAPENTIN [Concomitant]
     Active Substance: GABAPENTIN
     Dosage: UNK
     Dates: start: 2010
  8. PROZAC [Concomitant]
     Active Substance: FLUOXETINE HYDROCHLORIDE
     Dosage: UNK
     Dates: start: 2010
  9. LASIX [Concomitant]
     Active Substance: FUROSEMIDE
     Dosage: 0.5 DF, UNK
     Dates: start: 2010
  10. PREDNISONE [Concomitant]
     Active Substance: PREDNISONE
     Dosage: UNK
     Dates: start: 1997
  11. POTASSIUM [Concomitant]
     Active Substance: POTASSIUM
     Dosage: UNK
     Dates: start: 2010

REACTIONS (9)
  - Knee arthroplasty [Unknown]
  - Hip arthroplasty [Unknown]
  - Hypersensitivity [Unknown]
  - Urinary tract infection [Unknown]
  - Body height decreased [Unknown]
  - Weight increased [Unknown]
  - Herpes zoster [Recovered/Resolved]
  - Hypoacusis [Unknown]
  - Malaise [Unknown]

NARRATIVE: CASE EVENT DATE: 20160301
